FAERS Safety Report 4548257-0 (Version None)
Quarter: 2005Q1

REPORT INFORMATION
  Report Type: 
  Country: None (occurrence: None)
  Receive Date: 20050106
  Receipt Date: 20050106
  Transmission Date: 20050727
  Serious: Yes (Other)
  Sender: FDA-Public Use
  Company Number: None

PATIENT
  Age: 29 Year
  Sex: Female

DRUGS (1)
  1. CITALOPRAM 40 MG - FOREST PHARMACEUTICALS [Suspect]
     Indication: DEPRESSION
     Dosage: 40 MG QD
     Dates: start: 20041201, end: 20050101

REACTIONS (2)
  - DEPRESSION [None]
  - DRUG WITHDRAWAL SYNDROME [None]
